FAERS Safety Report 9674653 (Version 1)
Quarter: 2013Q4

REPORT INFORMATION
  Report Type: Spontaneous
  Country: US (occurrence: None)
  Receive Date: 20131106
  Receipt Date: 20131106
  Transmission Date: 20140711
  Serious: Yes (Other)
  Sender: FDA-Public Use
  Company Number: None

PATIENT
  Age: 28 Year
  Sex: Female

DRUGS (1)
  1. CITIRIZINE HYDROCHLORIDE [Suspect]
     Dosage: 1 ONCE DAILY
     Route: 048

REACTIONS (7)
  - Drug withdrawal syndrome [None]
  - Pruritus generalised [None]
  - Contusion [None]
  - Depression [None]
  - Burning sensation [None]
  - Dizziness [None]
  - Drug dependence [None]
